FAERS Safety Report 14896715 (Version 1)
Quarter: 2018Q2

REPORT INFORMATION
  Report Type: Spontaneous
  Country: US (occurrence: US)
  Receive Date: 20180427
  Receipt Date: 20180427
  Transmission Date: 20180711
  Serious: Yes (Hospitalization)
  Sender: FDA-Public Use
  Company Number: None

PATIENT
  Age: 85 Year
  Sex: Male

DRUGS (10)
  1. ASPIRIN 81MG [Concomitant]
     Active Substance: ASPIRIN
  2. FISH OIL 500MG [Concomitant]
  3. OMEGA-3 CAPSULE 500MG [Concomitant]
  4. CAPECITABINE. [Suspect]
     Active Substance: CAPECITABINE
     Indication: OESOPHAGEAL CARCINOMA
     Dosage: ?          OTHER FREQUENCY:TWICE DAILY X 14;?
     Route: 048
  5. LISINOPRIL 10MG [Concomitant]
     Active Substance: LISINOPRIL
  6. ONDANSETRON 8MG [Concomitant]
     Active Substance: ONDANSETRON
  7. ERGOCALCIFEROL 50,000 UNITS [Concomitant]
  8. COLACE [Concomitant]
     Active Substance: DOCUSATE SODIUM
  9. FLUOCINONIDE OINTMENT 0.05% [Concomitant]
  10. DEXAMETHASONE 0.75MG [Concomitant]

REACTIONS (1)
  - Hospitalisation [None]

NARRATIVE: CASE EVENT DATE: 20180426
